FAERS Safety Report 4994480-0 (Version None)
Quarter: 2006Q2

REPORT INFORMATION
  Report Type: 
  Country: None (occurrence: None)
  Receive Date: 20060505
  Receipt Date: 20051104
  Transmission Date: 20061013
  Serious: Yes (Hospitalization)
  Sender: FDA-Public Use
  Company Number: US-MERCK-0511USA00767

PATIENT
  Age: 80 Year
  Sex: Male
  Weight: 68 kg

DRUGS (7)
  1. VIOXX [Suspect]
     Indication: ARTHRITIS
     Route: 048
     Dates: start: 20010101, end: 20021201
  2. THYROID TABLETS USP [Concomitant]
     Route: 065
  3. HYTRIN [Concomitant]
     Route: 065
  4. PAXIL [Concomitant]
     Route: 065
  5. ASPIRIN [Concomitant]
     Route: 065
  6. SINGULAIR [Concomitant]
     Route: 065
  7. CENTRUM [Concomitant]
     Route: 065

REACTIONS (17)
  - ATRIAL FIBRILLATION [None]
  - CARDIAC DISORDER [None]
  - CARDIAC FAILURE CONGESTIVE [None]
  - CAROTID ARTERY DISEASE [None]
  - CEREBROVASCULAR DISORDER [None]
  - COLLAPSE OF LUNG [None]
  - DEMENTIA [None]
  - DRUG HYPERSENSITIVITY [None]
  - DYSPNOEA [None]
  - FALL [None]
  - HEMIPARESIS [None]
  - IODINE ALLERGY [None]
  - LUNG INFECTION PSEUDOMONAL [None]
  - MYOCARDIAL INFARCTION [None]
  - PNEUMOTHORAX [None]
  - PULMONARY OEDEMA [None]
  - SKIN ULCER [None]
